FAERS Safety Report 7898680-1 (Version None)
Quarter: 2011Q4

REPORT INFORMATION
  Report Type: 
  Country: None (occurrence: None)
  Receive Date: 20111107
  Receipt Date: 20111101
  Transmission Date: 20120403
  Serious: Yes (Other)
  Sender: FDA-Public Use
  Company Number: US-PFIZER INC-2011268404

PATIENT
  Age: 52 Year
  Sex: Male
  Weight: 78 kg

DRUGS (5)
  1. ACYCLOVIR [Concomitant]
     Dosage: 400 MG, 2X/DAY
     Route: 048
  2. PENICILLIN V [Concomitant]
     Dosage: 500 MG, 2X/DAY
     Route: 048
  3. DEXAMETHASONE SODIUM PHOSPHATE [Suspect]
  4. BORTEZOMIB [Suspect]
  5. PENTAMIDINE [Concomitant]
     Dosage: 300 MG, MONTHLY

REACTIONS (7)
  - BLOOD ALKALINE PHOSPHATASE INCREASED [None]
  - ASPARTATE AMINOTRANSFERASE INCREASED [None]
  - INFUSION RELATED REACTION [None]
  - FEBRILE NEUTROPENIA [None]
  - PULMONARY OEDEMA [None]
  - EJECTION FRACTION DECREASED [None]
  - ALANINE AMINOTRANSFERASE INCREASED [None]
